FAERS Safety Report 22820737 (Version 2)
Quarter: 2025Q3

REPORT INFORMATION
  Report Type: Report from Study
  Country: CA (occurrence: CA)
  Receive Date: 20230814
  Receipt Date: 20250902
  Transmission Date: 20251021
  Serious: Yes (Other)
  Sender: TAKEDA
  Company Number: CA-TAKEDA-2023TUS078350

PATIENT
  Age: 55 Year
  Sex: Female

DRUGS (9)
  1. VEDOLIZUMAB [Suspect]
     Active Substance: VEDOLIZUMAB
     Indication: Crohn^s disease
  2. VEDOLIZUMAB [Suspect]
     Active Substance: VEDOLIZUMAB
     Dosage: 300 MILLIGRAM, Q4WEEKS
     Dates: start: 20250805
  3. PANTOPRAZOLE SODIUM [Suspect]
     Active Substance: PANTOPRAZOLE SODIUM
     Indication: Product used for unknown indication
  4. VITAMIN D [Concomitant]
     Active Substance: VITAMIN D NOS
  5. Cortiment [Concomitant]
  6. ESOMEPRAZOLE [Concomitant]
     Active Substance: ESOMEPRAZOLE
  7. RANITIDINE [Concomitant]
     Active Substance: RANITIDINE
  8. PERINDOPRIL [Concomitant]
     Active Substance: PERINDOPRIL
  9. VAGIFEM [Concomitant]
     Active Substance: ESTRADIOL

REACTIONS (4)
  - Crohn^s disease [Unknown]
  - Fungal infection [Recovered/Resolved]
  - Vulvovaginal mycotic infection [Unknown]
  - Off label use [Unknown]

NARRATIVE: CASE EVENT DATE: 20250805
